FAERS Safety Report 4291895-3 (Version None)
Quarter: 2004Q1

REPORT INFORMATION
  Report Type: 
  Country: None (occurrence: None)
  Receive Date: 20040211
  Receipt Date: 20011121
  Transmission Date: 20041129
  Serious: No
  Sender: FDA-Public Use
  Company Number: US-GLAXOSMITHKLINE-A0168692A

PATIENT
  Age: 59 Year
  Sex: Female
  Weight: 59.1 kg

DRUGS (4)
  1. LAMICTAL [Suspect]
     Indication: BIPOLAR DISORDER
     Dosage: 25MG PER DAY
     Route: 048
  2. NEURONTIN [Concomitant]
     Dosage: 2400MG PER DAY
  3. FIORICET [Concomitant]
  4. EXCEDRIN [Concomitant]

REACTIONS (5)
  - DEPRESSION [None]
  - FALL [None]
  - HEADACHE [None]
  - INSOMNIA [None]
  - TREMOR [None]
